FAERS Safety Report 8781622 (Version 1)
Quarter: 2012Q4

REPORT INFORMATION
  Report Type: 
  Country: US (occurrence: US)
  Receive Date: 20120913
  Receipt Date: 20120913
  Transmission Date: 20130627
  Serious: Yes (Other)
  Sender: FDA-Public Use
  Company Number: US-ROCHE-1124158

PATIENT
  Sex: Female

DRUGS (4)
  1. PEGASYS [Suspect]
     Indication: PRODUCT USED FOR UNKNOWN INDICATION
     Route: 065
  2. INCIVEK [Concomitant]
  3. RIBAVIRIN [Concomitant]
  4. PROCRIT [Concomitant]

REACTIONS (3)
  - Pain in extremity [Unknown]
  - Hepatitis C RNA positive [Unknown]
  - Pain [Unknown]
